FAERS Safety Report 11039434 (Version 2)
Quarter: 2015Q2

REPORT INFORMATION
  Report Type: Spontaneous
  Country: US (occurrence: US)
  Receive Date: 20150416
  Receipt Date: 20150525
  Transmission Date: 20150821
  Serious: No
  Sender: FDA-Public Use
  Company Number: US-JNJFOC-20140804564

PATIENT
  Age: 80 Year
  Sex: Male

DRUGS (6)
  1. FISH OIL [Concomitant]
     Active Substance: FISH OIL
     Dosage: 2000(UNITS UNSPECIFIED)
  2. XARELTO [Suspect]
     Active Substance: RIVAROXABAN
     Indication: CEREBROVASCULAR ACCIDENT PROPHYLAXIS
     Route: 048
     Dates: start: 20140623
  3. BYSTOLIC [Concomitant]
     Active Substance: NEBIVOLOL HYDROCHLORIDE
  4. XARELTO [Suspect]
     Active Substance: RIVAROXABAN
     Indication: ATRIAL FIBRILLATION
     Route: 048
     Dates: start: 20140623
  5. LOSARTAN [Concomitant]
     Active Substance: LOSARTAN
     Dosage: 100(UNSPECIFIED UNITS)
  6. TIKOSYN [Concomitant]
     Active Substance: DOFETILIDE
     Dosage: 500(UNITS UNSPECIFIED)

REACTIONS (1)
  - Vision blurred [Recovered/Resolved]
